FAERS Safety Report 13991375 (Version 1)
Quarter: 2017Q3

REPORT INFORMATION
  Report Type: Spontaneous
  Country: DE (occurrence: DE)
  Receive Date: 20170920
  Receipt Date: 20170920
  Transmission Date: 20171128
  Serious: Yes (Other)
  Sender: FDA-Public Use
  Company Number: DE-TORRENT-00004021

PATIENT
  Age: 65 Year
  Sex: Male

DRUGS (5)
  1. LITHIUM. [Concomitant]
     Active Substance: LITHIUM
  2. VENLAFAXINE [Concomitant]
     Active Substance: VENLAFAXINE HYDROCHLORIDE
  3. QUETIAPINE. [Suspect]
     Active Substance: QUETIAPINE
  4. DOMPERIDONE [Concomitant]
     Active Substance: DOMPERIDONE
  5. WARFARIN [Concomitant]
     Active Substance: WARFARIN

REACTIONS (4)
  - Drug withdrawal syndrome [Recovered/Resolved]
  - Drug dependence [Unknown]
  - Nausea [Recovered/Resolved]
  - Vomiting [Recovered/Resolved]
